FAERS Safety Report 10642412 (Version 1)
Quarter: 2014Q4

REPORT INFORMATION
  Report Type: Spontaneous
  Country: US (occurrence: None)
  Receive Date: 20141121
  Receipt Date: 20141121
  Transmission Date: 20150529
  Serious: No
  Sender: FDA-Public Use
  Company Number: 163-10004-14090598

PATIENT
  Age: 56 Year
  Sex: Female

DRUGS (14)
  1. PREDNISONE(PREDNISONE) [Concomitant]
  2. HYDROCODONE(ACETAMINOPHEN(REMEDEINE) [Concomitant]
  3. HUMIRA(ADALIMUMAB) [Concomitant]
  4. MULTIVITAMINS(MULTIVITAMINS) [Concomitant]
  5. CLONAZEPAM(CLONAZEPAM) [Concomitant]
  6. GABAPENTIN(GABAPENTIN) [Concomitant]
  7. OTEZLA [Suspect]
     Active Substance: APREMILAST
     Indication: PSORIATIC ARTHROPATHY
     Dates: start: 201407
  8. FOLIC ACID (FOLIC ACID) [Concomitant]
     Active Substance: FOLIC ACID
  9. MUPIROCIN(MUPIROCIN) [Concomitant]
  10. CITALOPRAM [Concomitant]
     Active Substance: CITALOPRAM HYDROBROMIDE
  11. CLOBETASOL(CLOBETASOL) [Concomitant]
  12. ACITRETIN(ACITRETIN) [Concomitant]
  13. ENBREL(ETANERCEPT) [Concomitant]
  14. METHOTREXATE(METHOTREXATE) [Concomitant]

REACTIONS (2)
  - Nausea [None]
  - Headache [None]

NARRATIVE: CASE EVENT DATE: 201407
